FAERS Safety Report 8002905-1 (Version None)
Quarter: 2011Q4

REPORT INFORMATION
  Report Type: 
  Country: None (occurrence: None)
  Receive Date: 20111222
  Receipt Date: 20110308
  Transmission Date: 20120403
  Serious: No
  Sender: FDA-Public Use
  Company Number: US-GLAXOSMITHKLINE-A0917154A

PATIENT
  Sex: Male

DRUGS (1)
  1. AVODART [Suspect]
     Route: 048

REACTIONS (4)
  - ERECTILE DYSFUNCTION [None]
  - DIZZINESS [None]
  - PRURITUS [None]
  - DRUG ADMINISTRATION ERROR [None]
